FAERS Safety Report 9061500 (Version 1)
Quarter: 2013Q1

REPORT INFORMATION
  Report Type: Spontaneous
  Country: US (occurrence: US)
  Receive Date: 20130204
  Receipt Date: 20130204
  Transmission Date: 20140127
  Serious: Yes (Hospitalization, Other)
  Sender: FDA-Public Use
  Company Number: US-SANOFI-AVENTIS-2013SA007743

PATIENT
  Age: 85 Year
  Sex: Male

DRUGS (3)
  1. PLAVIX [Suspect]
     Dosage: ONCE EVERY OTHER DAY
     Route: 048
     Dates: start: 20110623, end: 20121201
  2. PLAVIX [Suspect]
     Dosage: ONCE EVERY OTHER DAY
     Route: 048
     Dates: start: 20121210
  3. ALL OTHER THERAPEUTIC PRODUCTS [Suspect]

REACTIONS (4)
  - Renal failure acute [Unknown]
  - Myocardial infarction [Unknown]
  - Anaemia [Unknown]
  - Gastrointestinal haemorrhage [Unknown]
